FAERS Safety Report 9012868 (Version 1)
Quarter: 2013Q1

REPORT INFORMATION
  Report Type: Report from Study
  Country: JP (occurrence: JP)
  Receive Date: 20130114
  Receipt Date: 20130114
  Transmission Date: 20140127
  Serious: Yes (Death)
  Sender: FDA-Public Use
  Company Number: JP-AMGEN-KDC431408

PATIENT
  Age: 76 Year
  Sex: Female
  Weight: 42 kg

DRUGS (4)
  1. DENOSUMAB [Suspect]
     Indication: POLLAKIURIA
     Dosage: UNK UNK, Q6MO
     Route: 058
     Dates: start: 20090518, end: 20100517
  2. NEW CALCICHEW D3 [Concomitant]
     Indication: OSTEOPOROSIS
     Dosage: 2 UNK, QD
     Route: 048
     Dates: start: 20090421, end: 20100811
  3. POLLAKISU [Concomitant]
     Indication: POLLAKIURIA
     Dosage: 2 MG, TID
     Route: 048
     Dates: start: 20100617, end: 20100811
  4. POLLAKISU [Concomitant]
     Dosage: AS NEEDED
     Route: 048
     Dates: start: 20100617, end: 20100811

REACTIONS (1)
  - Cardiac failure [Fatal]
